FAERS Safety Report 6612353-4 (Version None)
Quarter: 2010Q1

REPORT INFORMATION
  Report Type: 
  Country: None (occurrence: None)
  Receive Date: 20100226
  Receipt Date: 20100226
  Transmission Date: 20100710
  Serious: No
  Sender: FDA-Public Use
  Company Number: None

PATIENT
  Sex: Male
  Weight: 127.0072 kg

DRUGS (12)
  1. IBUPROFEN [Suspect]
     Dosage: 1600MG DAY PO
     Route: 048
  2. GABAPENTIN [Suspect]
     Dosage: 400MG DAY PO
     Route: 048
  3. AMLODIPINE [Concomitant]
  4. SIMVASTATIN [Concomitant]
  5. MOM [Concomitant]
  6. LORAZEPAM [Concomitant]
  7. FOLIC ACID [Concomitant]
  8. GLIPIZIDE [Concomitant]
  9. RIVASTIGMINE TARTRATE [Concomitant]
  10. FLUDROCORTISONE [Concomitant]
  11. ALBUTEROL [Concomitant]
  12. ESCITALOPRAM [Concomitant]

REACTIONS (2)
  - CONDITION AGGRAVATED [None]
  - OEDEMA PERIPHERAL [None]
